FAERS Safety Report 9768536 (Version 2)
Quarter: 2014Q2

REPORT INFORMATION
  Report Type: Spontaneous
  Country: IT (occurrence: IT)
  Receive Date: 20131217
  Receipt Date: 20140522
  Transmission Date: 20141212
  Serious: Yes (Hospitalization)
  Sender: FDA-Public Use
  Company Number: IT-MYLANLABS-113AS20130412

PATIENT
  Age: 88 Year
  Sex: Female

DRUGS (4)
  1. LORAZEPAM [Suspect]
     Indication: PSYCHOMOTOR HYPERACTIVITY
     Dosage: 2.5 MG DAILY
     Route: 048
     Dates: start: 20120311, end: 20130311
  2. LEXOTAN [Suspect]
     Indication: ANXIETY
     Dosage: 2.5 MG DAILY
     Route: 048
  3. TRITTICO [Suspect]
     Indication: AGITATION
     Dosage: 75 MG DAILY
     Route: 048
  4. ACETYLSALICYLIC ACID [Concomitant]
     Indication: PRODUCT USED FOR UNKNOWN INDICATION

REACTIONS (5)
  - Balance disorder [Recovering/Resolving]
  - Asthenia [Unknown]
  - Condition aggravated [Unknown]
  - Decreased appetite [Unknown]
  - Fall [Unknown]
